FAERS Safety Report 5344910-X (Version None)
Quarter: 2007Q2

REPORT INFORMATION
  Report Type: 
  Country: None (occurrence: None)
  Receive Date: 20070417
  Receipt Date: 20060321
  Transmission Date: 20071010
  Serious: Yes (Other)
  Sender: FDA-Public Use
  Company Number: PHEH2006US02902

PATIENT
  Age: 65 Year
  Sex: Female
  Weight: 63.5 kg

DRUGS (1)
  1. FORADIL [Suspect]
     Indication: EMPHYSEMA
     Dosage: 12MCG, Q12H, INHALATION
     Route: 055
     Dates: start: 20060303, end: 20060303

REACTIONS (4)
  - MUSCLE SPASMS [None]
  - TREMOR [None]
  - URTICARIA [None]
  - WHEEZING [None]
